FAERS Safety Report 9062746 (Version 3)
Quarter: 2014Q3

REPORT INFORMATION
  Report Type: Spontaneous
  Country: US (occurrence: US)
  Receive Date: 20130213
  Receipt Date: 20140805
  Transmission Date: 20150326
  Serious: No
  Sender: FDA-Public Use
  Company Number: US-PFIZER INC-2013054628

PATIENT
  Age: 62 Year
  Sex: Female
  Weight: 80.27 kg

DRUGS (13)
  1. IMITREX [Concomitant]
     Active Substance: SUMATRIPTAN\SUMATRIPTAN SUCCINATE
     Dosage: 20 MG, AS NEEDED
     Route: 045
  2. SOMAVERT [Suspect]
     Active Substance: PEGVISOMANT
     Indication: HYPOTHALAMO-PITUITARY DISORDER
     Dosage: 10 MG, DAILY
     Route: 058
     Dates: start: 20130123
  3. CRESTOR [Concomitant]
     Active Substance: ROSUVASTATIN CALCIUM
     Dosage: 10 MG, ALTERNATE DAY
  4. LEXAPRO [Concomitant]
     Active Substance: ESCITALOPRAM OXALATE
     Dosage: 10 MG, DAILY
  5. IBUPROFEN. [Concomitant]
     Active Substance: IBUPROFEN
     Dosage: 600 MG, AS NEEDED
  6. SOMAVERT [Suspect]
     Active Substance: PEGVISOMANT
     Dosage: UNK
  7. ZYRTEC [Concomitant]
     Active Substance: CETIRIZINE HYDROCHLORIDE
     Dosage: UNK
  8. TOPAMAX [Concomitant]
     Active Substance: TOPIRAMATE
     Dosage: 50 MG, DAILY
  9. NEXIUM [Concomitant]
     Active Substance: ESOMEPRAZOLE MAGNESIUM
     Dosage: 40 MG, DAILY
  10. LEVOTHYROXINE [Concomitant]
     Active Substance: LEVOTHYROXINE
     Dosage: 75 UG, UNK
  11. CABERGOLINE. [Concomitant]
     Active Substance: CABERGOLINE
     Dosage: 0.5 MG, 2X/WEEK
  12. CALCITONIN [Concomitant]
     Active Substance: CALCITONIN
     Dosage: 200 IU, AS NEEDED
     Route: 045
  13. VERAPAMIL [Concomitant]
     Active Substance: VERAPAMIL HYDROCHLORIDE
     Dosage: 240 MG, DAILY

REACTIONS (8)
  - Nausea [Unknown]
  - Vomiting [Unknown]
  - Sinusitis [Unknown]
  - Oropharyngeal pain [Unknown]
  - Paranasal sinus hypersecretion [Unknown]
  - Back pain [Unknown]
  - Headache [Unknown]
  - Dyspnoea [Unknown]
